FAERS Safety Report 23882150 (Version 1)
Quarter: 2024Q2

REPORT INFORMATION
  Report Type: Spontaneous
  Country: US (occurrence: US)
  Receive Date: 20240521
  Receipt Date: 20240521
  Transmission Date: 20240716
  Serious: Yes (Death, Hospitalization, Other)
  Sender: FDA-Public Use
  Company Number: US-BRISTOL-MYERS SQUIBB COMPANY-2024-078073

PATIENT
  Age: 93 Year
  Sex: Male

DRUGS (7)
  1. ELIQUIS [Suspect]
     Active Substance: APIXABAN
     Indication: Thrombosis prophylaxis
     Dosage: 5MG ONCE IN THE MORNING AND ONCE IN THE AFTERNOON
  2. ELIQUIS [Suspect]
     Active Substance: APIXABAN
     Indication: Atrial fibrillation
  3. VYNDAMAX [Suspect]
     Active Substance: TAFAMIDIS
     Indication: Amyloidosis
     Dosage: CAPSULE WITH A PLASTIC COATING
     Dates: start: 2023
  4. METOPROLOL [Concomitant]
     Active Substance: METOPROLOL
     Indication: Product used for unknown indication
  5. METOPROLOL [Concomitant]
     Active Substance: METOPROLOL
     Dates: start: 2023
  6. TORSEMIDE [Concomitant]
     Active Substance: TORSEMIDE
     Indication: Fluid retention
  7. TIKOSYN [Concomitant]
     Active Substance: DOFETILIDE
     Indication: Product used for unknown indication
     Dosage: TAKING IT EVERY 12 HOURS, SO 7AM AND 7PM

REACTIONS (5)
  - Cardiac failure congestive [Unknown]
  - Pneumonia [Unknown]
  - Weight decreased [Unknown]
  - Acute respiratory failure [Fatal]
  - Cardiac failure [Unknown]

NARRATIVE: CASE EVENT DATE: 20231231
